FAERS Safety Report 18667511 (Version 1)
Quarter: 2020Q4

REPORT INFORMATION
  Report Type: Report from Study
  Country: ZA (occurrence: ZA)
  Receive Date: 20201228
  Receipt Date: 20201228
  Transmission Date: 20210114
  Serious: Yes (Hospitalization)
  Sender: FDA-Public Use
  Company Number: ZA-JNJFOC-20200313916

PATIENT
  Age: 33 Year
  Sex: Male
  Weight: 117 kg

DRUGS (13)
  1. PREDNISONE. [Concomitant]
     Active Substance: PREDNISONE
     Route: 048
     Dates: start: 20190306
  2. AZATHIOPRINE. [Concomitant]
     Active Substance: AZATHIOPRINE
     Route: 048
     Dates: start: 20190206
  3. DOXAZOSIN [Concomitant]
     Active Substance: DOXAZOSIN MESYLATE
     Indication: HYPERTENSION
     Route: 048
     Dates: start: 20190206
  4. BISOPROLOL FUMARATE. [Concomitant]
     Active Substance: BISOPROLOL FUMARATE
     Indication: HYPERTENSION
     Route: 048
     Dates: start: 20190206
  5. ISONIAZID. [Concomitant]
     Active Substance: ISONIAZID
     Indication: LATENT TUBERCULOSIS
     Route: 048
     Dates: start: 20200227
  6. USTEKINUMAB [Suspect]
     Active Substance: USTEKINUMAB
     Dosage: MEDICATION KIT NUMBER: 20915
     Route: 058
     Dates: start: 20191008
  7. PERFALGAN [Concomitant]
     Active Substance: ACETAMINOPHEN
     Indication: NOSOCOMIAL INFECTION
     Route: 042
     Dates: start: 20200311, end: 20200315
  8. INVANZ [Concomitant]
     Active Substance: ERTAPENEM SODIUM
     Indication: NOSOCOMIAL INFECTION
     Route: 042
     Dates: start: 20200311, end: 20200315
  9. USTEKINUMAB [Suspect]
     Active Substance: USTEKINUMAB
     Dosage: MEDICATION KIT NUMBER: 16231
     Route: 058
     Dates: start: 20200122
  10. VOLTAREN [Concomitant]
     Active Substance: DICLOFENAC SODIUM
     Indication: NOSOCOMIAL INFECTION
     Route: 030
     Dates: start: 20200311, end: 20200311
  11. USTEKINUMAB [Suspect]
     Active Substance: USTEKINUMAB
     Indication: SYSTEMIC LUPUS ERYTHEMATOSUS
     Route: 042
     Dates: start: 20190807, end: 20190807
  12. USTEKINUMAB [Suspect]
     Active Substance: USTEKINUMAB
     Dosage: MEDICATION KIT NUMBER: 13057
     Route: 058
     Dates: start: 20191125
  13. PYRIDOXINE [Concomitant]
     Active Substance: PYRIDOXINE
     Indication: LATENT TUBERCULOSIS
     Route: 048
     Dates: start: 20200227

REACTIONS (2)
  - Nosocomial infection [Recovered/Resolved]
  - Tonsillitis [Recovered/Resolved]

NARRATIVE: CASE EVENT DATE: 20200305
